FAERS Safety Report 7133931-2 (Version None)
Quarter: 2010Q4

REPORT INFORMATION
  Report Type: 
  Country: None (occurrence: None)
  Receive Date: 20101203
  Receipt Date: 20101025
  Transmission Date: 20110411
  Serious: Yes (Hospitalization)
  Sender: FDA-Public Use
  Company Number: US-BAYER-201039186NA

PATIENT

DRUGS (2)
  1. YASMIN [Suspect]
     Indication: COAGULOPATHY
     Route: 048
     Dates: start: 20090701, end: 20090901
  2. YAZ [Suspect]
     Indication: COAGULOPATHY
     Route: 048
     Dates: start: 20090701, end: 20090901

REACTIONS (5)
  - METRORRHAGIA [None]
  - OBESITY [None]
  - PULMONARY EMBOLISM [None]
  - THROMBOSIS [None]
  - VAGINAL HAEMORRHAGE [None]
